FAERS Safety Report 17288383 (Version 1)
Quarter: 2020Q1

REPORT INFORMATION
  Report Type: Spontaneous
  Country: RU (occurrence: RU)
  Receive Date: 20200120
  Receipt Date: 20200120
  Transmission Date: 20200409
  Serious: Yes (Other)
  Sender: FDA-Public Use
  Company Number: RU-SA-2020SA011701

PATIENT
  Age: 53 Year
  Sex: Male

DRUGS (1)
  1. SOLIQUA 100/33 [Suspect]
     Active Substance: INSULIN GLARGINE\LIXISENATIDE
     Dosage: 28 IU, QD
     Route: 065

REACTIONS (3)
  - Hypoglycaemia [Recovered/Resolved]
  - Non-proliferative retinopathy [Unknown]
  - Diabetic neuropathy [Unknown]
